FAERS Safety Report 7127592 (Version 5)
Quarter: 2013Q2

REPORT INFORMATION
  Report Type: Spontaneous
  Country: US (occurrence: US)
  Receive Date: 20090924
  Receipt Date: 20130507
  Transmission Date: 20140414
  Serious: Yes (Hospitalization)
  Sender: FDA-Public Use
  Company Number: US-ASTRAZENECA-2008UW25621

PATIENT
  Age: 51 Year
  Sex: Male
  Weight: 147.4 kg

DRUGS (31)
  1. SEROQUEL [Suspect]
     Indication: INSOMNIA
     Dosage: 300-400 MG
     Route: 048
  2. SEROQUEL [Suspect]
     Indication: SCHIZOPHRENIA
     Dosage: 300-400 MG
     Route: 048
  3. SEROQUEL [Suspect]
     Indication: HALLUCINATION, AUDITORY
     Dosage: 300-400 MG
     Route: 048
  4. SEROQUEL [Suspect]
     Indication: BIPOLAR DISORDER
     Dosage: 300-400 MG
     Route: 048
  5. SEROQUEL [Suspect]
     Indication: DEPRESSION
     Dosage: 300-400 MG
     Route: 048
  6. SEROQUEL [Suspect]
     Indication: INSOMNIA
     Route: 048
     Dates: start: 20030305
  7. SEROQUEL [Suspect]
     Indication: SCHIZOPHRENIA
     Route: 048
     Dates: start: 20030305
  8. SEROQUEL [Suspect]
     Indication: HALLUCINATION, AUDITORY
     Route: 048
     Dates: start: 20030305
  9. SEROQUEL [Suspect]
     Indication: BIPOLAR DISORDER
     Route: 048
     Dates: start: 20030305
  10. SEROQUEL [Suspect]
     Indication: DEPRESSION
     Route: 048
     Dates: start: 20030305
  11. SEROQUEL [Suspect]
     Indication: INSOMNIA
     Route: 048
     Dates: start: 20080715
  12. SEROQUEL [Suspect]
     Indication: SCHIZOPHRENIA
     Route: 048
     Dates: start: 20080715
  13. SEROQUEL [Suspect]
     Indication: HALLUCINATION, AUDITORY
     Route: 048
     Dates: start: 20080715
  14. SEROQUEL [Suspect]
     Indication: BIPOLAR DISORDER
     Route: 048
     Dates: start: 20080715
  15. SEROQUEL [Suspect]
     Indication: DEPRESSION
     Route: 048
     Dates: start: 20080715
  16. SEROQUEL [Suspect]
     Indication: INSOMNIA
     Route: 048
  17. SEROQUEL [Suspect]
     Indication: SCHIZOPHRENIA
     Route: 048
  18. SEROQUEL [Suspect]
     Indication: HALLUCINATION, AUDITORY
     Route: 048
  19. SEROQUEL [Suspect]
     Indication: BIPOLAR DISORDER
     Route: 048
  20. SEROQUEL [Suspect]
     Indication: DEPRESSION
     Route: 048
  21. ABILIFY [Concomitant]
  22. HALDOL [Concomitant]
  23. RISPERDAL [Concomitant]
     Dates: start: 20030305
  24. THORAZINE [Concomitant]
  25. ZYPREXA [Concomitant]
  26. CLONIDINE [Concomitant]
     Route: 048
     Dates: start: 20030305
  27. ZANTAC [Concomitant]
     Route: 048
     Dates: start: 20030305
  28. FLEXERIL [Concomitant]
     Route: 048
     Dates: start: 20030305
  29. CHLOROTHIAZIDE [Concomitant]
     Route: 048
     Dates: start: 20030305
  30. DEPAKOTE [Concomitant]
     Dosage: 500 MG TWO Q AM,THREE QHS
     Dates: start: 20030305
  31. NAPROXEN [Concomitant]
     Route: 048
     Dates: start: 20030305

REACTIONS (8)
  - Hallucination, auditory [Unknown]
  - Drug intolerance [Unknown]
  - Type 2 diabetes mellitus [Unknown]
  - Bipolar disorder [Unknown]
  - Cardiac disorder [Unknown]
  - Chest pain [Unknown]
  - Fall [Unknown]
  - Dizziness [Unknown]
